FAERS Safety Report 7216900-3 (Version None)
Quarter: 2011Q1

REPORT INFORMATION
  Report Type: 
  Country: None (occurrence: None)
  Receive Date: 20110110
  Receipt Date: 20101230
  Transmission Date: 20110831
  Serious: Yes (Death, Other)
  Sender: FDA-Public Use
  Company Number: US-PAR PHARMACEUTICAL, INC-2011SCPR002384

PATIENT
  Age: 40 Year
  Sex: Male

DRUGS (3)
  1. PROPAFENONE HCL [Suspect]
     Indication: PRODUCT USED FOR UNKNOWN INDICATION
     Dosage: UNK
     Route: 048
  2. LISINOPRIL [Suspect]
     Indication: PRODUCT USED FOR UNKNOWN INDICATION
     Dosage: UNK
     Route: 048
  3. ANGIOTENSIN CONVERTING ENZYME INHIBITOR [Suspect]
     Indication: PRODUCT USED FOR UNKNOWN INDICATION
     Dosage: UNK
     Route: 048

REACTIONS (13)
  - DEATH [None]
  - UNRESPONSIVE TO STIMULI [None]
  - HYPOTENSION [None]
  - CONVULSION [None]
  - HEART RATE INCREASED [None]
  - PULMONARY CONGESTION [None]
  - INTENTIONAL OVERDOSE [None]
  - PULSE ABSENT [None]
  - VISCERAL CONGESTION [None]
  - COMPLETED SUICIDE [None]
  - DYSARTHRIA [None]
  - ELECTROCARDIOGRAM QRS COMPLEX PROLONGED [None]
  - BLOOD POTASSIUM DECREASED [None]
